FAERS Safety Report 12924579 (Version 5)
Quarter: 2017Q1

REPORT INFORMATION
  Report Type: Report from Study
  Country: US (occurrence: US)
  Receive Date: 20161109
  Receipt Date: 20170314
  Transmission Date: 20170428
  Serious: Yes (Death, Hospitalization, Other)
  Sender: FDA-Public Use
  Company Number: US-GILEAD-2016-0242275

PATIENT
  Age: 82 Year
  Sex: Female

DRUGS (11)
  1. SILDENAFIL                         /01367502/ [Concomitant]
     Active Substance: SILDENAFIL
     Indication: PULMONARY ARTERIAL HYPERTENSION
     Dates: start: 20130827
  2. FLUTICASONE. [Concomitant]
     Active Substance: FLUTICASONE
  3. PRAVASTATIN. [Concomitant]
     Active Substance: PRAVASTATIN
  4. JANUVIA [Concomitant]
     Active Substance: SITAGLIPTIN PHOSPHATE
  5. METFORMIN [Concomitant]
     Active Substance: METFORMIN HYDROCHLORIDE
  6. AMBRISENTAN [Suspect]
     Active Substance: AMBRISENTAN
     Indication: PULMONARY ARTERIAL HYPERTENSION
     Dosage: 5 MG, QD
     Route: 065
     Dates: start: 20130126
  7. ACARBOSE. [Concomitant]
     Active Substance: ACARBOSE
  8. ENOXAPARIN [Concomitant]
     Active Substance: ENOXAPARIN
  9. OMEPRAZOLE. [Concomitant]
     Active Substance: OMEPRAZOLE
  10. DIGOXIN. [Concomitant]
     Active Substance: DIGOXIN
  11. TORSEMIDE. [Concomitant]
     Active Substance: TORSEMIDE

REACTIONS (5)
  - Abdominal distension [Unknown]
  - Death [Fatal]
  - Cardiac failure [Not Recovered/Not Resolved]
  - Drug dose omission [Unknown]
  - Peripheral swelling [Unknown]
